FAERS Safety Report 23087233 (Version 1)
Quarter: 2023Q4

REPORT INFORMATION
  Report Type: Spontaneous
  Country: DE (occurrence: DE)
  Receive Date: 20231020
  Receipt Date: 20231020
  Transmission Date: 20240109
  Serious: Yes (Other)
  Sender: FDA-Public Use
  Company Number: DE-002147023-NVSC2020DE071576

PATIENT
  Age: 41 Year
  Sex: Female
  Weight: 96 kg

DRUGS (3)
  1. FULVESTRANT [Suspect]
     Active Substance: FULVESTRANT
     Indication: Breast cancer metastatic
     Dosage: 500 MG, 4W
     Route: 030
     Dates: start: 20190628
  2. KISQALI [Suspect]
     Active Substance: RIBOCICLIB
     Dosage: 400 MG ADMINISTRATION SCHEME 21 DAYS INTAKE, 7 DAYS PAUSE
     Route: 048
     Dates: start: 20210910
  3. KISQALI [Suspect]
     Active Substance: RIBOCICLIB
     Indication: Breast cancer metastatic
     Dosage: 600 MG, QD (21 DAYS INTAKE, 7 DAYS PAUSE)
     Route: 048
     Dates: start: 20190628

REACTIONS (17)
  - Tendon pain [Not Recovered/Not Resolved]
  - Myalgia [Not Recovered/Not Resolved]
  - Headache [Recovered/Resolved]
  - Oedema [Recovered/Resolved]
  - Mucosal inflammation [Recovered/Resolved]
  - Alopecia [Not Recovered/Not Resolved]
  - Nausea [Recovering/Resolving]
  - Pruritus [Recovered/Resolved]
  - Migraine [Recovered/Resolved]
  - Fungal infection [Recovering/Resolving]
  - Weight increased [Not Recovered/Not Resolved]
  - Muscle spasms [Recovered/Resolved]
  - Constipation [Recovered/Resolved]
  - Vomiting [Recovering/Resolving]
  - Hot flush [Not Recovered/Not Resolved]
  - Diarrhoea [Recovered/Resolved]
  - Rash [Recovering/Resolving]

NARRATIVE: CASE EVENT DATE: 20190723
